FAERS Safety Report 5983232-0 (Version None)
Quarter: 2008Q4

REPORT INFORMATION
  Report Type: 
  Country: None (occurrence: None)
  Receive Date: 20081208
  Receipt Date: 20080415
  Transmission Date: 20090506
  Serious: No
  Sender: FDA-Public Use
  Company Number: US-BAYER-200811682BCC

PATIENT
  Age: 88 Year
  Sex: Female
  Weight: 68 kg

DRUGS (4)
  1. ALEVE [Suspect]
     Indication: ARTHRALGIA
     Dosage: AS USED: 440-220 MG  UNIT DOSE: 220 MG
     Route: 048
     Dates: start: 20080301
  2. FUROSEMIDE [Concomitant]
  3. SYNTHROID [Concomitant]
  4. ASPIRIN [Concomitant]
     Dosage: TOTAL DAILY DOSE: 81 MG  UNIT DOSE: 81 MG

REACTIONS (1)
  - ERYTHEMA [None]
